FAERS Safety Report 21796462 (Version 1)
Quarter: 2022Q4

REPORT INFORMATION
  Report Type: Spontaneous
  Country: US (occurrence: US)
  Receive Date: 20221229
  Receipt Date: 20221229
  Transmission Date: 20230113
  Serious: No
  Sender: FDA-Public Use
  Company Number: US-Emergent Biosolutions-22000345

PATIENT
  Sex: Female

DRUGS (2)
  1. NALOXONE HYDROCHLORIDE [Suspect]
     Active Substance: NALOXONE HYDROCHLORIDE
     Indication: Overdose
     Dosage: 3 CANS
     Route: 065
  2. FENTANYL [Suspect]
     Active Substance: FENTANYL
     Indication: Product used for unknown indication
     Route: 065

REACTIONS (1)
  - Rebound effect [Unknown]
